FAERS Safety Report 7321265-2 (Version None)
Quarter: 2011Q1

REPORT INFORMATION
  Report Type: 
  Country: None (occurrence: None)
  Receive Date: 20110223
  Receipt Date: 20110223
  Transmission Date: 20110831
  Serious: Yes (Hospitalization)
  Sender: FDA-Public Use
  Company Number: None

PATIENT
  Sex: Male
  Weight: 89.5 kg

DRUGS (4)
  1. FLUOROURACIL [Suspect]
     Dosage: 1720 MG
  2. BEVACIZUMAB (RHUMAB VEGF) [Suspect]
     Dosage: 932 MG
  3. OXALIPLATIN [Suspect]
     Dosage: 366 MG
  4. LEUCOVORIN CALCIUM [Suspect]
     Dosage: 1720 MG

REACTIONS (6)
  - CLOSTRIDIUM TEST POSITIVE [None]
  - EMPHYSEMA [None]
  - DIARRHOEA [None]
  - PULMONARY FIBROSIS [None]
  - ORGANISING PNEUMONIA [None]
  - INTERSTITIAL LUNG DISEASE [None]
